FAERS Safety Report 8598708-X (Version None)
Quarter: 2012Q2

REPORT INFORMATION
  Report Type: 
  Country: None (occurrence: None)
  Receive Date: 20120423
  Receipt Date: 20100526
  Transmission Date: 20120825
  Serious: Yes (Hospitalization)
  Sender: FDA-Public Use
  Company Number: PHHY2010US38291

PATIENT
  Age: 58 Year
  Sex: Female

DRUGS (1)
  1. EXJADE [Suspect]
     Indication: ACUTE MYELOID LEUKAEMIA
     Dosage: 750 MG, QD, ORAL
     Route: 048

REACTIONS (2)
  - BLOOD IRON INCREASED [None]
  - LIVER DISORDER [None]
